FAERS Safety Report 19042070 (Version 2)
Quarter: 2021Q1

REPORT INFORMATION
  Report Type: Report from Study
  Country: US (occurrence: US)
  Receive Date: 20210323
  Receipt Date: 20210330
  Transmission Date: 20210420
  Serious: Yes (Other)
  Sender: FDA-Public Use
  Company Number: US-HBP-2021US021868

PATIENT
  Sex: Male

DRUGS (3)
  1. VALCHLOR [Suspect]
     Active Substance: MECHLORETHAMINE
     Dosage: UNK, UNKNOWN
     Route: 061
     Dates: start: 20210322
  2. VALCHLOR [Suspect]
     Active Substance: MECHLORETHAMINE
     Indication: CUTANEOUS T-CELL LYMPHOMA
     Dosage: UNK, QD
     Route: 061
     Dates: start: 2021, end: 2021
  3. CEFALEXIN [Suspect]
     Active Substance: CEPHALEXIN
     Indication: CATARACT OPERATION
     Dosage: UNK, UNKNOWN

REACTIONS (7)
  - Cataract operation [Unknown]
  - Ill-defined disorder [Unknown]
  - Application site swelling [Unknown]
  - Ear operation [Unknown]
  - Eye operation [Unknown]
  - Intentional dose omission [Recovered/Resolved]
  - Cataract [Unknown]
